FAERS Safety Report 9465998 (Version 2)
Quarter: 2013Q3

REPORT INFORMATION
  Report Type: Spontaneous
  Country: US (occurrence: US)
  Receive Date: 20130820
  Receipt Date: 20130820
  Transmission Date: 20140515
  Serious: No
  Sender: FDA-Public Use
  Company Number: US-MYLANLABS-2012S1018520

PATIENT
  Sex: Female

DRUGS (3)
  1. TEMAZEPAM CAPSULES [Suspect]
     Indication: INSOMNIA
     Route: 048
     Dates: start: 20120901
  2. ZOLOFT [Concomitant]
  3. ZYRTEC [Concomitant]

REACTIONS (2)
  - Flatulence [Not Recovered/Not Resolved]
  - Abdominal distension [Not Recovered/Not Resolved]
